FAERS Safety Report 4559380-9 (Version None)
Quarter: 2005Q1

REPORT INFORMATION
  Report Type: 
  Country: None (occurrence: None)
  Receive Date: 20050124
  Receipt Date: 20050117
  Transmission Date: 20050727
  Serious: Yes (Other)
  Sender: FDA-Public Use
  Company Number: PHEH2005US00998

PATIENT
  Age: 85 Year
  Sex: Female
  Weight: 97 kg

DRUGS (6)
  1. ZELNORM [Suspect]
     Indication: CONSTIPATION
     Dosage: 6 MG, BID
     Route: 048
     Dates: start: 20041201
  2. ZELNORM [Suspect]
     Dosage: 6 MG, BID
     Route: 048
     Dates: start: 20050111
  3. AGGRENOX [Concomitant]
  4. ACETYLSALICYLIC ACID SRT [Concomitant]
  5. NEXIUM [Concomitant]
  6. CARDIZEM [Concomitant]

REACTIONS (5)
  - ANXIETY [None]
  - CONFUSIONAL STATE [None]
  - HEADACHE [None]
  - PALPITATIONS [None]
  - VITREOUS FLOATERS [None]
